FAERS Safety Report 22138973 (Version 1)
Quarter: 2023Q1

REPORT INFORMATION
  Report Type: Spontaneous
  Country: CN (occurrence: CN)
  Receive Date: 20230327
  Receipt Date: 20230327
  Transmission Date: 20230417
  Serious: Yes (Other)
  Sender: FDA-Public Use
  Company Number: None

PATIENT
  Age: 55 Year
  Sex: Female
  Weight: 60 kg

DRUGS (6)
  1. CYCLOPHOSPHAMIDE [Suspect]
     Active Substance: CYCLOPHOSPHAMIDE
     Indication: Leukaemia
     Dosage: 1 G, QD, ROUTE: INTRA PUMP INJECTION (DILUTED WITH NS 500 ML)
     Route: 050
     Dates: start: 20230222, end: 20230222
  2. CYCLOPHOSPHAMIDE [Suspect]
     Active Substance: CYCLOPHOSPHAMIDE
     Dosage: 1 G, QD, ROUTE: INTRA PUMP INJECTION
     Route: 050
     Dates: start: 20230301, end: 20230301
  3. DEXTROSE [Suspect]
     Active Substance: DEXTROSE
     Indication: Medication dilution
     Dosage: 250 ML, QD, STRENGTH: 5% (USED TO DILUTE CYTARABINE 1.6 G)
     Route: 050
     Dates: start: 20230222, end: 20230224
  4. SODIUM CHLORIDE [Suspect]
     Active Substance: SODIUM CHLORIDE
     Indication: Medication dilution
     Dosage: 500 ML, QD, STRENGTH: 0.9%, ROUTE: INTRA PUMP INJECTION (USED TO DILUTE CYCLOPHOSPHAMIDE 1 G)
     Route: 050
     Dates: start: 20230222, end: 20230222
  5. CYTARABINE [Suspect]
     Active Substance: CYTARABINE
     Indication: Leukaemia
     Dosage: 1.6 G, QD, ROUTE: INTRA PUMP INJECTION (DILUTED WITH GLUCOSE 250 ML)
     Route: 050
     Dates: start: 20230222, end: 20230224
  6. CYTARABINE [Suspect]
     Active Substance: CYTARABINE
     Dosage: 1.6 G, QD, ROUTE: INTRA PUMP INJECTION
     Route: 050
     Dates: start: 20230301, end: 20230303

REACTIONS (2)
  - Myelosuppression [Unknown]
  - Full blood count decreased [Unknown]

NARRATIVE: CASE EVENT DATE: 20230308
